FAERS Safety Report 7514445-4 (Version None)
Quarter: 2011Q2

REPORT INFORMATION
  Report Type: 
  Country: None (occurrence: None)
  Receive Date: 20110601
  Receipt Date: 20110523
  Transmission Date: 20111010
  Serious: Yes (Other)
  Sender: FDA-Public Use
  Company Number: NL-JNJFOC-20110510256

PATIENT
  Age: 51 Year
  Sex: Male

DRUGS (4)
  1. DARUNAVIR ETHANOLATE [Suspect]
     Indication: HIV INFECTION
     Route: 048
  2. ANTIRETROVIRALS (NOS) [Concomitant]
     Indication: HIV INFECTION
     Route: 065
  3. ZIDOVUDINE [Concomitant]
     Indication: HIV INFECTION
     Route: 065
  4. ENFUVIRTIDE [Concomitant]
     Indication: HIV INFECTION
     Route: 065

REACTIONS (2)
  - VIROLOGIC FAILURE [None]
  - DRUG INTOLERANCE [None]
